FAERS Safety Report 6220508-6 (Version None)
Quarter: 2009Q2

REPORT INFORMATION
  Report Type: 
  Country: None (occurrence: None)
  Receive Date: 20090610
  Receipt Date: 20090602
  Transmission Date: 20091009
  Serious: Yes (Hospitalization)
  Sender: FDA-Public Use
  Company Number: US-AMGEN-KDL349907

PATIENT
  Sex: Female
  Weight: 82.2 kg

DRUGS (10)
  1. PROCRIT [Suspect]
     Indication: RENAL FAILURE CHRONIC
     Route: 058
  2. VENOFER [Concomitant]
  3. ALTACE [Concomitant]
  4. IRON [Concomitant]
  5. CYCLOSPORINE [Concomitant]
  6. PREDNISONE [Concomitant]
  7. PINDOLOL [Concomitant]
  8. MULTI-VITAMINS [Concomitant]
  9. VITAMIN B COMPLEX CAP [Concomitant]
  10. VITAMIN D [Concomitant]

REACTIONS (3)
  - KIDNEY TRANSPLANT REJECTION [None]
  - POST PROCEDURAL HAEMATOMA [None]
  - THERAPEUTIC RESPONSE DECREASED [None]
